FAERS Safety Report 7410673-7 (Version None)
Quarter: 2011Q2

REPORT INFORMATION
  Report Type: 
  Country: None (occurrence: None)
  Receive Date: 20110405
  Receipt Date: 20110322
  Transmission Date: 20111010
  Serious: Yes (Other)
  Sender: FDA-Public Use
  Company Number: 1000019641

PATIENT
  Age: 38 Year
  Sex: Male

DRUGS (2)
  1. SEROQUEL (QUETIAPINE) (QUETIAPINE) [Concomitant]
  2. ESCITALOPRAM OXALATE [Suspect]
     Dosage: ORAL
     Route: 048

REACTIONS (2)
  - INTENTIONAL SELF-INJURY [None]
  - COMPULSIONS [None]
